FAERS Safety Report 9376831 (Version 1)
Quarter: 2013Q3

REPORT INFORMATION
  Report Type: Report from Study
  Country: US (occurrence: US)
  Receive Date: 20130701
  Receipt Date: 20130701
  Transmission Date: 20140515
  Serious: Yes (Hospitalization, Other)
  Sender: FDA-Public Use
  Company Number: US-CELGENEUS-163-C4047-12081083

PATIENT
  Age: 76 Year
  Sex: Male
  Weight: 105.2 kg

DRUGS (21)
  1. CC-4047 [Suspect]
     Indication: PLASMA CELL MYELOMA
     Dosage: 4 MILLIGRAM
     Route: 048
     Dates: start: 20111130
  2. CC-4047 [Suspect]
     Dosage: 3 MILLIGRAM
     Route: 048
     Dates: start: 20120712, end: 20120806
  3. DEXAMETHASONE [Suspect]
     Indication: PLASMA CELL MYELOMA
     Dosage: 40 MILLIGRAM
     Route: 065
     Dates: start: 20111130
  4. DEXAMETHASONE [Suspect]
     Dosage: 20 MILLIGRAM
     Route: 065
     Dates: start: 20120712, end: 20120806
  5. PRUVATE 21-7 [Concomitant]
     Indication: SUPPLEMENTATION THERAPY
     Route: 048
  6. CALCIUM [Concomitant]
     Indication: SUPPLEMENTATION THERAPY
     Route: 065
  7. COUMADIN [Concomitant]
     Indication: ATRIAL FIBRILLATION
     Dosage: 7.5 MILLIGRAM
     Route: 048
  8. COUMADIN [Concomitant]
     Indication: PULMONARY EMBOLISM
  9. B-12 DOTS [Concomitant]
     Indication: SUPPLEMENTATION THERAPY
     Route: 048
  10. BENADRYL ALLERGY [Concomitant]
     Indication: MULTIPLE ALLERGIES
     Route: 048
  11. CYMBALTA [Concomitant]
     Indication: DEPRESSION
     Route: 048
  12. OXYCODONE [Concomitant]
     Indication: PAIN
     Dosage: 10MG-5MG
     Route: 048
  13. CYCLOPHOSPHAMIDE [Concomitant]
     Indication: PRODUCT USED FOR UNKNOWN INDICATION
     Route: 048
  14. GRANISETRON [Concomitant]
     Indication: NAUSEA
     Dosage: .4429 MILLIGRAM
     Route: 062
  15. PROCHLORPERAZINE MALEATE [Concomitant]
     Indication: NAUSEA
     Route: 048
  16. LYRICA [Concomitant]
     Indication: NEURALGIA
     Dosage: 300 MILLIGRAM
     Route: 048
  17. LEVAQUIN [Concomitant]
     Indication: INFECTION PROPHYLAXIS
     Route: 048
  18. DIFLUCAN [Concomitant]
     Indication: INFECTION PROPHYLAXIS
     Route: 048
  19. KCL [Concomitant]
     Indication: ELECTROLYTE IMBALANCE
     Route: 048
  20. LASIX [Concomitant]
     Indication: FLUID RETENTION
     Route: 048
  21. FLUCONAZOLE [Concomitant]
     Indication: NEUTROPENIA
     Route: 065

REACTIONS (2)
  - Convulsion [Recovered/Resolved]
  - Dyspnoea [Recovered/Resolved]
